FAERS Safety Report 16847968 (Version 2)
Quarter: 2019Q3

REPORT INFORMATION
  Report Type: Spontaneous
  Country: DE (occurrence: DE)
  Receive Date: 20190924
  Receipt Date: 20190930
  Transmission Date: 20191005
  Serious: Yes (Life-Threatening, Hospitalization, Other)
  Sender: FDA-Public Use
  Company Number: DE-AUROBINDO-AUR-APL-2019-060553

PATIENT
  Age: 43 Year
  Sex: Female

DRUGS (9)
  1. IBUPROFEN. [Suspect]
     Active Substance: IBUPROFEN
     Indication: PRODUCT USED FOR UNKNOWN INDICATION
     Dosage: UNKNOWN DOSES
     Route: 065
  2. TIOTROPIUM [Concomitant]
     Active Substance: TIOTROPIUM
     Indication: ASTHMA
     Dosage: 18 MICROGRAM, TWO TIMES A DAY
     Route: 055
  3. PREDNISOLONE. [Suspect]
     Active Substance: PREDNISOLONE
     Indication: RESPIRATORY ACIDOSIS
     Dosage: 200 MILLIGRAM, ONCE A DAY
     Route: 065
  4. QUETIAPINE. [Suspect]
     Active Substance: QUETIAPINE
     Indication: PRODUCT USED FOR UNKNOWN INDICATION
     Dosage: UNK
     Route: 065
  5. BUDESONIDE;FORMOTEROL [Concomitant]
     Active Substance: BUDESONIDE\FORMOTEROL
     Indication: ASTHMA
     Dosage: FIXED-DOSE COMBINATION,320/9 ?G TWICE DAILY
     Route: 055
  6. TIOTROPIUM [Concomitant]
     Active Substance: TIOTROPIUM
     Dosage: UNK
     Route: 065
  7. MEPOLIZUMABUM [Suspect]
     Active Substance: MEPOLIZUMAB
     Indication: ASTHMA
     Dosage: 100 MILLIGRAM
     Route: 058
  8. BUDESONIDE;FORMOTEROL [Concomitant]
     Active Substance: BUDESONIDE\FORMOTEROL
     Dosage: 658 MICROGRAM
     Route: 065
  9. BUDESONIDE. [Concomitant]
     Active Substance: BUDESONIDE
     Indication: ASTHMA
     Dosage: 400 MICROGRAM, ONCE A DAY

REACTIONS (14)
  - Pyrexia [Recovered/Resolved]
  - Suicide attempt [Unknown]
  - Status asthmaticus [Recovered/Resolved]
  - Eosinophil percentage increased [Recovered/Resolved]
  - Asthma [Recovered/Resolved]
  - Inflammatory marker increased [Recovered/Resolved]
  - Toxicity to various agents [Recovered/Resolved]
  - Suicidal ideation [Unknown]
  - Lung infiltration [Recovered/Resolved]
  - Hypercapnia [Recovered/Resolved]
  - Respiratory acidosis [Recovered/Resolved]
  - Body temperature increased [Recovered/Resolved]
  - Off label use [Unknown]
  - Drug ineffective [Unknown]
